FAERS Safety Report 6020404-3 (Version None)
Quarter: 2008Q4

REPORT INFORMATION
  Report Type: 
  Country: None (occurrence: None)
  Receive Date: 20081226
  Receipt Date: 20081222
  Transmission Date: 20090506
  Serious: Yes (Hospitalization, Other)
  Sender: FDA-Public Use
  Company Number: US-BRISTOL-MYERS SQUIBB COMPANY-13413273

PATIENT
  Age: 41 Year
  Sex: Male
  Weight: 126 kg

DRUGS (3)
  1. CETUXIMAB [Suspect]
     Indication: HEAD AND NECK CANCER
     Dosage: THERAPY INITIATED ON 10MAY2006: THERAPY DELAYED FOR 7 DAYS
     Route: 042
     Dates: start: 20060522, end: 20060522
  2. DOCETAXEL [Suspect]
     Indication: HEAD AND NECK CANCER
     Dosage: THERAPY INITIATED ON 10MAY2006: THERAPY DELAYED FOR 7 DAYS
     Route: 042
     Dates: start: 20060522, end: 20060522
  3. RADIATION THERAPY [Suspect]
     Indication: HEAD AND NECK CANCER
     Dosage: 1 DOSAGE FORM = 18GY,NUMBER OF FRACTIONS: 9: NUMBER OF ELAPSED DAYS: 11
     Dates: start: 20060525, end: 20060525

REACTIONS (5)
  - DEHYDRATION [None]
  - DERMATITIS ACNEIFORM [None]
  - NAUSEA [None]
  - STOMATITIS [None]
  - VOMITING [None]
